FAERS Safety Report 5124502-8 (Version None)
Quarter: 2006Q4

REPORT INFORMATION
  Report Type: 
  Country: None (occurrence: None)
  Receive Date: 20060821
  Receipt Date: 20060613
  Transmission Date: 20070319
  Serious: No
  Sender: FDA-Public Use
  Company Number: TPA2005A01209

PATIENT
  Age: 67 Year
  Sex: Female
  Weight: 63.5036 kg

DRUGS (9)
  1. ROZEREM [Suspect]
     Indication: SLEEP DISORDER
     Dosage: 8 MG, AS REQUIRED, PER ORAL
     Route: 048
     Dates: start: 20050930, end: 20051005
  2. DIOVAN HCT [Concomitant]
  3. LIPITOR [Concomitant]
  4. ZETIA [Concomitant]
  5. LEXAPRO (ESCITALOPRAM OXALATE) (10 MILLIGRAM) [Concomitant]
  6. HYDROCHLOROTHIAZIDE (HYDROCHLOROTHIAZIDE) (25 MILLIGRAM) [Concomitant]
  7. INDOCIN (INDOMETACIN) (25 MILLIGRAM) [Concomitant]
  8. ASA (ACETYLSALICYLIC ACID) (81 MILLIGRAM) [Concomitant]
  9. CALCIUM WITH VITAMIN D (ERGOCALCIFEROL, CALCIUM PHOSPHATE, CALCIUM SOD [Concomitant]

REACTIONS (3)
  - DRUG INEFFECTIVE [None]
  - LOSS OF CONTROL OF LEGS [None]
  - MUSCULAR WEAKNESS [None]
